FAERS Safety Report 4351354-6 (Version None)
Quarter: 2004Q2

REPORT INFORMATION
  Report Type: 
  Country: None (occurrence: None)
  Receive Date: 20040428
  Receipt Date: 20040310
  Transmission Date: 20050107
  Serious: Yes (Death, Hospitalization, Other)
  Sender: FDA-Public Use
  Company Number: USA040361639

PATIENT
  Age: 23 Year
  Sex: Male

DRUGS (1)
  1. PROZAC [Suspect]
     Dosage: 15 MG/1 DAY

REACTIONS (2)
  - CONVULSION [None]
  - HYPONATRAEMIA [None]
